FAERS Safety Report 7948840-6 (Version None)
Quarter: 2011Q4

REPORT INFORMATION
  Report Type: 
  Country: None (occurrence: None)
  Receive Date: 20111130
  Receipt Date: 20111121
  Transmission Date: 20120403
  Serious: Yes (Disabling)
  Sender: FDA-Public Use
  Company Number: PHEH2011US010168

PATIENT

DRUGS (1)
  1. ZOMETA [Suspect]
     Route: 042

REACTIONS (5)
  - OSTEONECROSIS OF JAW [None]
  - PAIN [None]
  - INJURY [None]
  - ANXIETY [None]
  - DECREASED INTEREST [None]
